FAERS Safety Report 17102936 (Version 3)
Quarter: 2020Q2

REPORT INFORMATION
  Report Type: Report from Study
  Country: US (occurrence: US)
  Receive Date: 20191203
  Receipt Date: 20200612
  Transmission Date: 20200713
  Serious: No
  Sender: FDA-Public Use
  Company Number: NVSC2019US055122

PATIENT
  Sex: Female

DRUGS (2)
  1. GILENYA [Suspect]
     Active Substance: FINGOLIMOD HYDROCHLORIDE
     Route: 048
  2. GILENYA [Suspect]
     Active Substance: FINGOLIMOD HYDROCHLORIDE
     Indication: MULTIPLE SCLEROSIS
     Dosage: 0.5 MG, QD
     Route: 048
     Dates: start: 20191109

REACTIONS (7)
  - Blood pressure increased [Unknown]
  - Neuralgia [Unknown]
  - Concomitant disease aggravated [Unknown]
  - Fatigue [Unknown]
  - Vaginal cyst [Unknown]
  - Vision blurred [Unknown]
  - Dizziness [Unknown]
